FAERS Safety Report 6311799-1 (Version None)
Quarter: 2009Q3

REPORT INFORMATION
  Report Type: 
  Country: None (occurrence: None)
  Receive Date: 20090813
  Receipt Date: 20090813
  Transmission Date: 20100115
  Serious: No
  Sender: FDA-Public Use
  Company Number: None

PATIENT
  Age: 80 Year
  Sex: Female
  Weight: 58.9676 kg

DRUGS (2)
  1. PACERONE [Suspect]
     Indication: ATRIAL FIBRILLATION
     Dosage: 200 MG TWICE DAILY
     Dates: start: 20090428, end: 20090707
  2. SIMVASTATIN [Suspect]
     Indication: BLOOD CHOLESTEROL
     Dosage: 20 MG ONCE DAILY
     Dates: start: 20090519, end: 20090707

REACTIONS (12)
  - CONSTIPATION [None]
  - DEHYDRATION [None]
  - DEPRESSION [None]
  - DYSGEUSIA [None]
  - FEELING OF BODY TEMPERATURE CHANGE [None]
  - INSOMNIA [None]
  - LISTLESS [None]
  - MUSCULAR WEAKNESS [None]
  - MYALGIA [None]
  - RETCHING [None]
  - TREMOR [None]
  - VOMITING [None]
